FAERS Safety Report 21312528 (Version 1)
Quarter: 2022Q3

REPORT INFORMATION
  Report Type: Spontaneous
  Country: US (occurrence: None)
  Receive Date: 20220909
  Receipt Date: 20220909
  Transmission Date: 20221026
  Serious: No
  Sender: FDA-Public Use
  Company Number: US-ARIS GLOBAL-202206-1183

PATIENT
  Sex: Male

DRUGS (10)
  1. OXERVATE [Suspect]
     Active Substance: CENEGERMIN-BKBJ
     Indication: Hypoaesthesia eye
     Route: 047
     Dates: start: 20220616
  2. OXERVATE [Suspect]
     Active Substance: CENEGERMIN-BKBJ
     Indication: Neurotrophic keratopathy
  3. FARXIGA [Concomitant]
     Active Substance: DAPAGLIFLOZIN PROPANEDIOL
  4. FLUOROMETHOLONE [Concomitant]
     Active Substance: FLUOROMETHOLONE
     Dosage: DROPS SUSPENSION
  5. HUMIRA [Concomitant]
     Active Substance: ADALIMUMAB
     Dosage: 40MG/0.4ML PEN INJECTION KIT
  6. XIIDRA [Concomitant]
     Active Substance: LIFITEGRAST
  7. METFORMIN HYDROCHLORIDE [Concomitant]
     Active Substance: METFORMIN HYDROCHLORIDE
     Dosage: EXTENDED RELEASE FOR 24 HOURS
  8. TESTOSTERONE CYPIONATE [Concomitant]
     Active Substance: TESTOSTERONE CYPIONATE
     Dosage: VIAL
  9. JANUVIA [Concomitant]
     Active Substance: SITAGLIPTIN PHOSPHATE
  10. GABAPENTIN [Concomitant]
     Active Substance: GABAPENTIN

REACTIONS (1)
  - Intentional product misuse [Unknown]
